FAERS Safety Report 10815932 (Version 1)
Quarter: 2015Q1

REPORT INFORMATION
  Report Type: Report from Study
  Country: US (occurrence: US)
  Receive Date: 20150218
  Receipt Date: 20150218
  Transmission Date: 20150721
  Serious: No
  Sender: FDA-Public Use
  Company Number: US-ABBVIE-14K-163-1282838-00

PATIENT
  Age: 22 Year
  Sex: Male

DRUGS (3)
  1. HUMIRA [Suspect]
     Active Substance: ADALIMUMAB
     Indication: COLITIS ULCERATIVE
     Dates: start: 20140816, end: 20140816
  2. HUMIRA [Suspect]
     Active Substance: ADALIMUMAB
     Dates: start: 20140830, end: 20140830
  3. HUMIRA [Suspect]
     Active Substance: ADALIMUMAB

REACTIONS (4)
  - Muscle spasms [Not Recovered/Not Resolved]
  - Muscle spasms [Unknown]
  - Gait disturbance [Not Recovered/Not Resolved]
  - Pain in extremity [Not Recovered/Not Resolved]

NARRATIVE: CASE EVENT DATE: 201408
